FAERS Safety Report 8840518 (Version 1)
Quarter: 2012Q4

REPORT INFORMATION
  Report Type: 
  Country: US (occurrence: US)
  Receive Date: 20121015
  Receipt Date: 20121015
  Transmission Date: 20130627
  Serious: No
  Sender: FDA-Public Use
  Company Number: US-ROCHE-GNE256545

PATIENT
  Sex: Male
  Weight: 28.53 kg

DRUGS (1)
  1. NUTROPIN AQ [Suspect]
     Indication: GROWTH HORMONE DEFICIENCY
     Dosage: 1.6 mg, qd
     Route: 058
     Dates: start: 200711

REACTIONS (2)
  - Rash generalised [Recovered/Resolved]
  - Rash [Unknown]
